FAERS Safety Report 9315862 (Version 1)
Quarter: 2013Q2

REPORT INFORMATION
  Report Type: Spontaneous
  Country: JP (occurrence: JP)
  Receive Date: 20130530
  Receipt Date: 20130530
  Transmission Date: 20140414
  Serious: Yes (Death)
  Sender: FDA-Public Use
  Company Number: JP-MERCK-1304JPN015846

PATIENT
  Age: 23 Year
  Sex: Male

DRUGS (1)
  1. TEMODAL [Suspect]
     Indication: ATYPICAL TERATOID/RHABDOID TUMOUR OF CNS
     Dosage: 150 MG/M2, QD
     Route: 048

REACTIONS (2)
  - Disease progression [Fatal]
  - Drug ineffective [Unknown]
